FAERS Safety Report 5925523-5 (Version None)
Quarter: 2008Q4

REPORT INFORMATION
  Report Type: 
  Country: None (occurrence: None)
  Receive Date: 20081021
  Receipt Date: 20081013
  Transmission Date: 20090506
  Serious: Yes (Other)
  Sender: FDA-Public Use
  Company Number: PHBS2008IR06030

PATIENT
  Age: 24 Year
  Sex: Male

DRUGS (1)
  1. DEFEROXAMINE MESYLATE [Suspect]
     Indication: THALASSAEMIA BETA
     Dosage: 41.6 MG/KG/DAY

REACTIONS (3)
  - DEAFNESS NEUROSENSORY [None]
  - HEPATITIS B ANTIGEN POSITIVE [None]
  - HEPATITIS C VIRUS TEST [None]
